FAERS Safety Report 20118989 (Version 1)
Quarter: 2021Q4

REPORT INFORMATION
  Report Type: Spontaneous
  Country: FR (occurrence: FR)
  Receive Date: 20211126
  Receipt Date: 20211126
  Transmission Date: 20220303
  Serious: Yes (Other)
  Sender: FDA-Public Use
  Company Number: FR-SA-2021SA304069

PATIENT
  Age: 48 Year
  Sex: Female

DRUGS (2)
  1. TRANEXAMIC ACID [Suspect]
     Active Substance: TRANEXAMIC ACID
     Indication: Hereditary angioedema
     Dosage: UNKNOWN
  2. PROGESTERONE [Suspect]
     Active Substance: PROGESTERONE
     Indication: Hereditary angioedema
     Dosage: UNKNOWN

REACTIONS (1)
  - Acute abdomen [Recovered/Resolved]
